FAERS Safety Report 7194180-5 (Version None)
Quarter: 2010Q4

REPORT INFORMATION
  Report Type: 
  Country: None (occurrence: None)
  Receive Date: 20101223
  Receipt Date: 20101025
  Transmission Date: 20110411
  Serious: No
  Sender: FDA-Public Use
  Company Number: US-AMGEN-KDL436997

PATIENT

DRUGS (1)
  1. ENBREL [Suspect]
     Indication: RHEUMATOID ARTHRITIS
     Dosage: 50 MG, QWK
     Route: 058
     Dates: start: 20100812

REACTIONS (6)
  - BACK PAIN [None]
  - HERPES ZOSTER [None]
  - HYPOAESTHESIA ORAL [None]
  - NERVOUSNESS [None]
  - PARAESTHESIA ORAL [None]
  - PRURITUS [None]
